FAERS Safety Report 4846354-3 (Version None)
Quarter: 2005Q4

REPORT INFORMATION
  Report Type: 
  Country: None (occurrence: None)
  Receive Date: 20051206
  Receipt Date: 20051121
  Transmission Date: 20060501
  Serious: Yes (Death, Other)
  Sender: FDA-Public Use
  Company Number: US-NOVOPROD-248773

PATIENT
  Sex: Male

DRUGS (1)
  1. NORDITROPIN CARTRIDGES [Suspect]
     Indication: ILL-DEFINED DISORDER
     Dosage: UNKNOWN
     Route: 058

REACTIONS (7)
  - APPENDICITIS PERFORATED [None]
  - ASTHENIA [None]
  - CARDIO-RESPIRATORY ARREST [None]
  - DIARRHOEA [None]
  - INTRA-ABDOMINAL HAEMORRHAGE [None]
  - LOSS OF CONSCIOUSNESS [None]
  - PYREXIA [None]
